FAERS Safety Report 16643271 (Version 2)
Quarter: 2020Q3

REPORT INFORMATION
  Report Type: Spontaneous
  Country: NL (occurrence: NL)
  Receive Date: 20190729
  Receipt Date: 20200918
  Transmission Date: 20201102
  Serious: Yes (Other)
  Sender: FDA-Public Use
  Company Number: NL-MYLANLABS-2019M1070799

PATIENT
  Age: 74 Year
  Sex: Female
  Weight: 64 kg

DRUGS (6)
  1. GLICLAZIDE [Concomitant]
     Active Substance: GLICLAZIDE
     Dosage: UNK
  2. SIMVASTATINE [Concomitant]
     Active Substance: SIMVASTATIN
     Dosage: UNK
  3. PANTOPRAZOL                        /01263201/ [Concomitant]
     Active Substance: PANTOPRAZOLE
     Dosage: UNK
  4. ROPINIROLE. [Suspect]
     Active Substance: ROPINIROLE
     Dosage: 1D1,5MG
     Route: 048
     Dates: start: 20190122
  5. THYRAX                             /00068001/ [Concomitant]
     Active Substance: LEVOTHYROXINE
     Dosage: UNK
  6. ROPINIROLE. [Suspect]
     Active Substance: ROPINIROLE
     Indication: RESTLESS LEGS SYNDROME
     Dosage: 1.5 MILLIGRAM, 1D1,5MG
     Route: 048
     Dates: start: 20190122

REACTIONS (3)
  - Syncope [Recovering/Resolving]
  - Movement disorder [Recovering/Resolving]
  - Nausea [Recovering/Resolving]

NARRATIVE: CASE EVENT DATE: 20190324
